FAERS Safety Report 8089027-9 (Version None)
Quarter: 2012Q1

REPORT INFORMATION
  Report Type: 
  Country: None (occurrence: None)
  Receive Date: 20120128
  Receipt Date: 20110812
  Transmission Date: 20120608
  Serious: No
  Sender: FDA-Public Use
  Company Number: PR-ABBOTT-11P-131-0732070-00

PATIENT
  Sex: Female
  Weight: 58.112 kg

DRUGS (3)
  1. ALPHAGAN [Concomitant]
     Indication: GLAUCOMA
     Route: 047
  2. METHOTREXATE [Concomitant]
     Indication: RHEUMATOID ARTHRITIS
     Dosage: 0.5 ML ON SATURDAYS
     Route: 058
  3. HUMIRA [Suspect]
     Indication: RHEUMATOID ARTHRITIS
     Route: 058
     Dates: start: 20110601

REACTIONS (3)
  - BREAST PAIN [None]
  - RHINALGIA [None]
  - INFLAMMATION [None]
